FAERS Safety Report 9049825 (Version 1)
Quarter: 2013Q1

REPORT INFORMATION
  Report Type: Report from Study
  Country: DK (occurrence: DK)
  Receive Date: 20130206
  Receipt Date: 20130206
  Transmission Date: 20140127
  Serious: Yes (Other)
  Sender: FDA-Public Use
  Company Number: DK-AMGEN-DNKCT2012022090

PATIENT
  Age: 55 Year
  Sex: Female

DRUGS (3)
  1. ETANERCEPT [Suspect]
     Indication: PSORIATIC ARTHROPATHY
     Dosage: 25MG, 2X/WEEK
     Dates: start: 20100412, end: 20120131
  2. METEX [Concomitant]
     Dosage: 15 MG, WEEKLY
     Route: 058
     Dates: start: 20090824, end: 20120130
  3. METEX [Concomitant]
     Dosage: 7.5 MG, WEEKLY
     Route: 058
     Dates: start: 20120121, end: 20120808

REACTIONS (1)
  - Endometrial adenocarcinoma [Not Recovered/Not Resolved]
